FAERS Safety Report 6394709-0 (Version None)
Quarter: 2009Q4

REPORT INFORMATION
  Report Type: 
  Country: None (occurrence: None)
  Receive Date: 20091009
  Receipt Date: 20090930
  Transmission Date: 20100525
  Serious: Yes (Death, Hospitalization)
  Sender: FDA-Public Use
  Company Number: RU-NOVOPROD-288768

PATIENT
  Age: 35 Year
  Sex: Female
  Weight: 50 kg

DRUGS (4)
  1. NOVORAPID [Suspect]
     Indication: TYPE 1 DIABETES MELLITUS
     Dosage: 4+2 IU
     Route: 058
     Dates: start: 20090605
  2. CAVINTON [Concomitant]
  3. STUGERON [Concomitant]
  4. L-THYROXINE                        /00068001/ [Concomitant]

REACTIONS (2)
  - DEATH [None]
  - OEDEMA [None]
